FAERS Safety Report 16814900 (Version 2)
Quarter: 2019Q3

REPORT INFORMATION
  Report Type: Spontaneous
  Country: IT (occurrence: IT)
  Receive Date: 20190917
  Receipt Date: 20190930
  Transmission Date: 20191005
  Serious: Yes (Other)
  Sender: FDA-Public Use
  Company Number: IT-TEVA-2019-IT-1106982

PATIENT
  Age: 62 Year
  Sex: Female
  Weight: 53 kg

DRUGS (6)
  1. FLUOROURACILE TEVA [Suspect]
     Active Substance: FLUOROURACIL
     Dosage: 612 MG, CYCLICAL
     Route: 040
     Dates: start: 20190325, end: 20190807
  2. DEXAMETHASONE. [Concomitant]
     Active Substance: DEXAMETHASONE
  3. IRINOTECAN KABI [Suspect]
     Active Substance: IRINOTECAN
     Indication: COLON CANCER
     Dosage: 275.4 MG, CYCLICAL
     Route: 042
     Dates: start: 20190325, end: 20190807
  4. AVASTIN [Suspect]
     Active Substance: BEVACIZUMAB
     Indication: COLON CANCER
     Dosage: 265 MG, CYCLICAL
     Route: 042
     Dates: start: 20190325, end: 20190807
  5. RANITIDINE HYDROCHLORIDE. [Concomitant]
     Active Substance: RANITIDINE HYDROCHLORIDE
  6. FLUOROURACILE TEVA [Suspect]
     Active Substance: FLUOROURACIL
     Indication: COLON CANCER
     Dosage: 3672 MG, CYCLICAL
     Route: 042
     Dates: start: 20190325, end: 20190807

REACTIONS (2)
  - Blood creatinine increased [Recovering/Resolving]
  - Leukopenia [Recovering/Resolving]

NARRATIVE: CASE EVENT DATE: 20190828
